FAERS Safety Report 5252119-3 (Version None)
Quarter: 2007Q1

REPORT INFORMATION
  Report Type: 
  Country: None (occurrence: None)
  Receive Date: 20070228
  Receipt Date: 20070221
  Transmission Date: 20070707
  Serious: Yes (Other)
  Sender: FDA-Public Use
  Company Number: GB-SANOFI-SYNTHELABO-A01200702069

PATIENT
  Age: 72 Year
  Sex: Male
  Weight: 82.2 kg

DRUGS (9)
  1. RAMIPRIL [Concomitant]
  2. MOVICOL [Concomitant]
  3. GRANISETRON [Concomitant]
     Route: 042
  4. DOMPERIDONE [Concomitant]
     Route: 048
     Dates: start: 20061123
  5. DEXAMETHASONE [Concomitant]
     Route: 042
     Dates: start: 20061123, end: 20070125
  6. CAPECITABINE [Concomitant]
     Route: 048
     Dates: start: 20061123, end: 20070125
  7. BENDROFLUMETHIAZIDE [Concomitant]
  8. ASPIRIN [Concomitant]
  9. ELOXATIN [Suspect]
     Indication: COLON CANCER
     Route: 042
     Dates: start: 20070104, end: 20070104

REACTIONS (1)
  - PERONEAL NERVE PALSY [None]
